FAERS Safety Report 17038458 (Version 1)
Quarter: 2019Q4

REPORT INFORMATION
  Report Type: Report from Study
  Country: US (occurrence: US)
  Receive Date: 20191115
  Receipt Date: 20191115
  Transmission Date: 20200122
  Serious: Yes (Hospitalization)
  Sender: FDA-Public Use
  Company Number: US-IPSEN BIOPHARMACEUTICALS, INC.-2019-18421

PATIENT
  Age: 53 Year
  Sex: Female
  Weight: 73.5 kg

DRUGS (16)
  1. LITHIUM. [Concomitant]
     Active Substance: LITHIUM
     Indication: BIPOLAR DISORDER
     Dosage: EVERY EVENING
  2. FLUOXETINE [Concomitant]
     Active Substance: FLUOXETINE HYDROCHLORIDE
     Indication: DEPRESSION
     Dates: start: 20190718
  3. DOCUSATE [Concomitant]
     Active Substance: DOCUSATE
     Indication: CONSTIPATION
     Route: 048
     Dates: start: 20190718
  4. ONIVYDE [Suspect]
     Active Substance: IRINOTECAN HYDROCHLORIDE
     Indication: PANCREATIC CARCINOMA
     Route: 042
     Dates: start: 20190926, end: 20190926
  5. LEUCOVORIN. [Suspect]
     Active Substance: LEUCOVORIN
     Indication: PANCREATIC CARCINOMA
     Route: 042
     Dates: start: 20190926, end: 20190926
  6. ACETAMINOPHEN. [Concomitant]
     Active Substance: ACETAMINOPHEN
     Indication: PAIN
     Dates: start: 20190718
  7. ENOXAPARIN [Concomitant]
     Active Substance: ENOXAPARIN
     Dosage: SUB-Q
  8. OPIUM. [Concomitant]
     Active Substance: OPIUM
     Dosage: TINCTURE
  9. LEVOTHYROXINE. [Concomitant]
     Active Substance: LEVOTHYROXINE
     Indication: HYPOTHYROIDISM
     Dosage: DAILY BEFORE BREAKFAST
  10. ROSUVASTATIN. [Concomitant]
     Active Substance: ROSUVASTATIN
     Indication: BLOOD CHOLESTEROL INCREASED
     Route: 048
  11. PANCRELIPASE. [Concomitant]
     Active Substance: PANCRELIPASE
     Dosage: 25,000 UNIT(S), 79,000 UNIT(S), 105,000 UNIT(S) WITH MEALS (2 CAPSULES)
  12. SMOFLIPID [Concomitant]
     Active Substance: FISH OIL\MEDIUM-CHAIN TRIGLYCERIDES\OLIVE OIL\SOYBEAN OIL
     Dosage: 20.83 ML/HOUR (SMOFLIPID 20% INTRAVENOUS EMULSION)
     Route: 042
  13. 5-FU [Suspect]
     Active Substance: FLUOROURACIL
     Indication: PRODUCT USED FOR UNKNOWN INDICATION
     Route: 042
     Dates: start: 20190926, end: 20190928
  14. INSULIN LISPRO [Concomitant]
     Active Substance: INSULIN LISPRO
     Dosage: SUB-Q; BEFORE MEALS
  15. ENOXAPARIN [Concomitant]
     Active Substance: ENOXAPARIN
     Dosage: SUB-Q
  16. TRAZODONE [Concomitant]
     Active Substance: TRAZODONE HYDROCHLORIDE
     Indication: INSOMNIA
     Dosage: EVERY BEDTIME
     Dates: start: 20190718

REACTIONS (6)
  - Vomiting [Recovering/Resolving]
  - Liver function test increased [Unknown]
  - Malnutrition [Not Recovered/Not Resolved]
  - Diarrhoea [Not Recovered/Not Resolved]
  - Nausea [Recovered/Resolved]
  - Abdominal pain [Not Recovered/Not Resolved]

NARRATIVE: CASE EVENT DATE: 2019
